FAERS Safety Report 7356786-X (Version None)
Quarter: 2011Q1

REPORT INFORMATION
  Report Type: 
  Country: None (occurrence: None)
  Receive Date: 20110316
  Receipt Date: 20110307
  Transmission Date: 20110831
  Serious: Yes (Hospitalization, Other)
  Sender: FDA-Public Use
  Company Number: US-BAYER-2011-020924

PATIENT
  Age: 86 Year
  Sex: Female

DRUGS (2)
  1. AVELOX [Suspect]
     Dosage: UNK
     Dates: start: 20110101, end: 20110301
  2. UNKNOWN [Concomitant]

REACTIONS (1)
  - ARRHYTHMIA [None]
